FAERS Safety Report 6083419-5 (Version None)
Quarter: 2009Q1

REPORT INFORMATION
  Report Type: 
  Country: None (occurrence: None)
  Receive Date: 20090219
  Receipt Date: 20090210
  Transmission Date: 20090719
  Serious: Yes (Hospitalization)
  Sender: FDA-Public Use
  Company Number: US-BIOGENIDEC-2008BI016105

PATIENT
  Age: 29 Year
  Sex: Female
  Weight: 81 kg

DRUGS (2)
  1. TYSABRI [Suspect]
     Indication: CROHN'S DISEASE
     Route: 042
     Dates: start: 20080411, end: 20080411
  2. TYSABRI [Suspect]
     Route: 042
     Dates: start: 20090106

REACTIONS (3)
  - ABDOMINAL ABSCESS [None]
  - ABSCESS INTESTINAL [None]
  - ILEOSTOMY CLOSURE [None]
